FAERS Safety Report 16517760 (Version 1)
Quarter: 2019Q3

REPORT INFORMATION
  Report Type: Spontaneous
  Country: US (occurrence: US)
  Receive Date: 20190522
  Receipt Date: 20190522
  Transmission Date: 20191004
  Serious: No
  Sender: FDA-Public Use
  Company Number: None

PATIENT
  Age: 84 Year
  Sex: Female
  Weight: 54.88 kg

DRUGS (1)
  1. FORTEO [Suspect]
     Active Substance: TERIPARATIDE
     Indication: OSTEOPOROTIC FRACTURE
     Dosage: ?          OTHER STRENGTH:600 MCG / 2.4 ML;?
     Route: 058
     Dates: start: 201811

REACTIONS (3)
  - Infection [None]
  - Rash [None]
  - Unevaluable event [None]
